FAERS Safety Report 7555941-3 (Version None)
Quarter: 2011Q2

REPORT INFORMATION
  Report Type: 
  Country: None (occurrence: None)
  Receive Date: 20110618
  Receipt Date: 20110606
  Transmission Date: 20111010
  Serious: Yes (Hospitalization, Other)
  Sender: FDA-Public Use
  Company Number: US-ELI_LILLY_AND_COMPANY-US201008003063

PATIENT
  Sex: Female

DRUGS (21)
  1. PRIMIDONE [Concomitant]
  2. FOLIC ACID [Concomitant]
  3. PREDNISONE [Concomitant]
  4. ZOLOFT [Concomitant]
  5. PRILOSEC [Concomitant]
  6. FISH OIL [Concomitant]
  7. DETROL [Concomitant]
  8. CRANBERRY [Concomitant]
  9. ASCORBIC ACID [Concomitant]
  10. DIOVAN [Concomitant]
  11. FORTEO [Suspect]
     Dosage: 20 UG, QD
     Dates: start: 20100601
  12. LIPITOR [Concomitant]
  13. MACRODANTIN [Concomitant]
  14. ALENDRONATE SODIUM [Concomitant]
  15. FORTEO [Suspect]
     Indication: OSTEOPOROSIS
     Dosage: 20 UG, DAILY (1/D)
     Dates: start: 20050101, end: 20070101
  16. KEPPRA [Concomitant]
  17. ALPRAZOLAM [Concomitant]
  18. FERROUS SULFATE TAB [Concomitant]
  19. METOPROLOL TARTRATE [Concomitant]
  20. CALCIUM CARBONATE [Concomitant]
  21. TYLENOL (CAPLET) [Concomitant]

REACTIONS (12)
  - CYSTITIS [None]
  - CARDIAC OPERATION [None]
  - OFF LABEL USE [None]
  - INJECTION SITE HAEMATOMA [None]
  - LOSS OF CONSCIOUSNESS [None]
  - PYREXIA [None]
  - TRANSIENT ISCHAEMIC ATTACK [None]
  - INTESTINAL OBSTRUCTION [None]
  - INJECTION SITE PAIN [None]
  - CONVULSION [None]
  - GASTROINTESTINAL INFECTION [None]
  - VERTIGO [None]
